FAERS Safety Report 19842668 (Version 1)
Quarter: 2021Q3

REPORT INFORMATION
  Report Type: Spontaneous
  Country: US (occurrence: US)
  Receive Date: 20210915
  Receipt Date: 20210915
  Transmission Date: 20211014
  Serious: No
  Sender: FDA-Public Use
  Company Number: US-AMGEN-USASP2021141725

PATIENT
  Sex: Female

DRUGS (9)
  1. VITAMIN B12 [Concomitant]
     Active Substance: CYANOCOBALAMIN
  2. CLONAZEPAM. [Concomitant]
     Active Substance: CLONAZEPAM
  3. NORTREL [ETHINYLESTRADIOL;NORETHISTERONE] [Concomitant]
  4. ENBREL [Suspect]
     Active Substance: ETANERCEPT
     Indication: RHEUMATOID ARTHRITIS
     Dosage: 50 MILLIGRAM, QWK
     Route: 058
     Dates: start: 20150216
  5. LOTEMAX [Concomitant]
     Active Substance: LOTEPREDNOL ETABONATE
     Dosage: 0,5%
  6. CALCIUM [Concomitant]
     Active Substance: CALCIUM
     Dosage: 600
  7. MELOXICAM. [Concomitant]
     Active Substance: MELOXICAM
  8. SERTRALINE HCL [Concomitant]
     Active Substance: SERTRALINE HYDROCHLORIDE
  9. VITAMIN D [ERGOCALCIFEROL] [Concomitant]
     Active Substance: ERGOCALCIFEROL

REACTIONS (1)
  - Injection site pain [Not Recovered/Not Resolved]
